FAERS Safety Report 5689723-4 (Version None)
Quarter: 2008Q1

REPORT INFORMATION
  Report Type: 
  Country: None (occurrence: None)
  Receive Date: 20080328
  Receipt Date: 20080317
  Transmission Date: 20080703
  Serious: Yes (Hospitalization, Other)
  Sender: FDA-Public Use
  Company Number: 2008-00915

PATIENT
  Age: 75 Year
  Sex: Female
  Weight: 77.1 kg

DRUGS (12)
  1. VELCADE [Suspect]
     Indication: MULTIPLE MYELOMA
     Dosage: 1.30 MG/M2, INTRAVENOUS
     Route: 042
     Dates: start: 20060101, end: 20060101
  2. VELCADE [Suspect]
     Indication: MULTIPLE MYELOMA
     Dosage: 1.30 MG/M2, INTRAVENOUS
     Route: 042
     Dates: start: 20080303, end: 20080313
  3. THALIDOMIDE [Suspect]
     Indication: MULTIPLE MYELOMA
     Dosage: ORAL
     Route: 048
     Dates: start: 20060101, end: 20060101
  4. DEXAMETHASONE [Concomitant]
  5. WARFARIN SODIUM [Concomitant]
  6. ACYCLOVIR [Concomitant]
  7. BACTRIM [Concomitant]
  8. PREVACID [Concomitant]
  9. IRON (IRON) [Concomitant]
  10. FOLIC ACID [Concomitant]
  11. MULTIVITAMINS (ERGOCALCIFEROL, CALCIUM SODIUM LACTATE, CALCIUM PHOSPHA [Concomitant]
  12. MAGNESIUM OXIDE (MAGNESIUM OXIDE) [Concomitant]

REACTIONS (21)
  - ANAEMIA [None]
  - BLOOD CHOLESTEROL INCREASED [None]
  - CONSTIPATION [None]
  - CONVULSION [None]
  - DECREASED APPETITE [None]
  - DIARRHOEA [None]
  - DISEASE RECURRENCE [None]
  - DYSARTHRIA [None]
  - FALL [None]
  - FATIGUE [None]
  - HAEMOPTYSIS [None]
  - HYPOAESTHESIA [None]
  - MALAISE [None]
  - MULTIPLE MYELOMA [None]
  - NAUSEA [None]
  - PARAESTHESIA [None]
  - RASH [None]
  - REVERSIBLE POSTERIOR LEUKOENCEPHALOPATHY SYNDROME [None]
  - SOCIAL AVOIDANT BEHAVIOUR [None]
  - TREMOR [None]
  - VOMITING [None]
